FAERS Safety Report 19048786 (Version 1)
Quarter: 2021Q1

REPORT INFORMATION
  Report Type: Spontaneous
  Country: US (occurrence: US)
  Receive Date: 20210323
  Receipt Date: 20210323
  Transmission Date: 20210420
  Serious: Yes (Other)
  Sender: FDA-Public Use
  Company Number: US-SUNOVION-2021SUN001005

PATIENT
  Age: 13 Year
  Sex: Male

DRUGS (1)
  1. LATUDA [Suspect]
     Active Substance: LURASIDONE HYDROCHLORIDE
     Dosage: 60 MG
     Route: 048

REACTIONS (8)
  - Crying [Unknown]
  - Wrong technique in product usage process [Unknown]
  - Self-injurious ideation [Unknown]
  - Screaming [Unknown]
  - Suicidal ideation [Unknown]
  - Emotional disorder [Unknown]
  - Affect lability [Unknown]
  - Weight increased [Unknown]
